FAERS Safety Report 7751885-2 (Version None)
Quarter: 2011Q3

REPORT INFORMATION
  Report Type: 
  Country: None (occurrence: None)
  Receive Date: 20110915
  Receipt Date: 20110909
  Transmission Date: 20111222
  Serious: Yes (Hospitalization)
  Sender: FDA-Public Use
  Company Number: KR-AMGEN-KORCT2011046459

PATIENT
  Age: 44 Year
  Sex: Female

DRUGS (4)
  1. BLINDED DENOSUMAB [Suspect]
     Indication: BREAST CANCER
     Dates: start: 20110908
  2. ADRIAMYCIN PFS [Concomitant]
     Indication: CHEMOTHERAPY
     Dosage: UNK
     Dates: start: 20110907
  3. BLINDED PLACEBO [Suspect]
     Indication: BREAST CANCER
     Dates: start: 20110908
  4. CYCLOPHOSPHAMIDE [Concomitant]
     Indication: CHEMOTHERAPY
     Dosage: UNK
     Dates: start: 20110907

REACTIONS (1)
  - BREAST PAIN [None]
